FAERS Safety Report 10873561 (Version 1)
Quarter: 2015Q1

REPORT INFORMATION
  Report Type: Spontaneous
  Country: US (occurrence: None)
  Receive Date: 20150223
  Receipt Date: 20150223
  Transmission Date: 20150721
  Serious: Yes (Hospitalization)
  Sender: FDA-Public Use
  Company Number: None

PATIENT
  Age: 59 Year
  Sex: Female
  Weight: 59.88 kg

DRUGS (11)
  1. TRAMADOL [Concomitant]
     Active Substance: TRAMADOL
  2. BACTRIM DS [Suspect]
     Active Substance: SULFAMETHOXAZOLE\TRIMETHOPRIM
     Indication: URINARY TRACT INFECTION
     Dosage: 1 TABLET BID ORAL
     Route: 048
     Dates: start: 20150122, end: 20150125
  3. GABAPENTIN. [Concomitant]
     Active Substance: GABAPENTIN
  4. ASPIRIN. [Concomitant]
     Active Substance: ASPIRIN
  5. PREPARATION H CREAM [Concomitant]
     Active Substance: MINERAL OIL\PETROLATUM\PHENYLEPHRINE HYDROCHLORIDE\SHARK LIVER OIL
  6. MIRALAX [Concomitant]
     Active Substance: POLYETHYLENE GLYCOL 3350
  7. QUETIAPINE [Concomitant]
     Active Substance: QUETIAPINE
  8. SENNOSIDES. [Concomitant]
     Active Substance: SENNOSIDES
  9. EFFEXOR [Concomitant]
     Active Substance: VENLAFAXINE HYDROCHLORIDE
  10. ACETAMINOPHEN. [Concomitant]
     Active Substance: ACETAMINOPHEN
  11. DEPAKOTE [Concomitant]
     Active Substance: DIVALPROEX SODIUM

REACTIONS (1)
  - Seizure [None]

NARRATIVE: CASE EVENT DATE: 20150125
